FAERS Safety Report 9187104 (Version 1)
Quarter: 2013Q1

REPORT INFORMATION
  Report Type: Spontaneous
  Country: GB (occurrence: GB)
  Receive Date: 20130325
  Receipt Date: 20130325
  Transmission Date: 20140127
  Serious: Yes (Death)
  Sender: FDA-Public Use
  Company Number: GB-CELGENEUS-167-20785-13032078

PATIENT
  Age: 50 Year
  Sex: Female

DRUGS (3)
  1. THALIDOMIDE [Suspect]
     Indication: AMYLOIDOSIS
     Route: 048
  2. DEXAMETHASONE [Concomitant]
     Indication: AMYLOIDOSIS
     Route: 065
  3. CYCLOPHOSPHAMIDE [Concomitant]
     Indication: AMYLOIDOSIS
     Route: 065

REACTIONS (1)
  - Ventricular fibrillation [Fatal]
